FAERS Safety Report 11442532 (Version 8)
Quarter: 2017Q4

REPORT INFORMATION
  Report Type: Report from Study
  Country: US (occurrence: US)
  Receive Date: 20150901
  Receipt Date: 20171229
  Transmission Date: 20180320
  Serious: Yes (Hospitalization)
  Sender: FDA-Public Use
  Company Number: PHEH2015US016952

PATIENT
  Age: 12 Year
  Sex: Male
  Weight: 70.36 kg

DRUGS (10)
  1. AFINITOR [Suspect]
     Active Substance: EVEROLIMUS
     Dosage: 10 MG, QD
     Route: 048
     Dates: start: 20131125
  2. CYPROHEPATADINE [Concomitant]
     Active Substance: CYPROHEPTADINE HYDROCHLORIDE
     Indication: PRODUCT USED FOR UNKNOWN INDICATION
     Route: 065
  3. IMITREX [Concomitant]
     Active Substance: SUMATRIPTAN SUCCINATE
     Indication: PRODUCT USED FOR UNKNOWN INDICATION
     Route: 065
  4. FLUORIDE//SODIUM FLUORIDE [Concomitant]
     Indication: PRODUCT USED FOR UNKNOWN INDICATION
     Route: 065
  5. DIASTAT                            /01384601/ [Concomitant]
     Indication: PRODUCT USED FOR UNKNOWN INDICATION
     Dosage: PRN
     Route: 065
  6. FLOVENT [Concomitant]
     Active Substance: FLUTICASONE PROPIONATE
     Indication: PRODUCT USED FOR UNKNOWN INDICATION
     Route: 065
  7. LORATADINE. [Concomitant]
     Active Substance: LORATADINE
     Indication: PRODUCT USED FOR UNKNOWN INDICATION
     Route: 065
  8. AFINITOR [Suspect]
     Active Substance: EVEROLIMUS
     Indication: ASTROCYTOMA, LOW GRADE
     Dosage: 10 MG, QD
     Route: 048
     Dates: start: 201308
  9. LAMICTAL [Concomitant]
     Active Substance: LAMOTRIGINE
     Indication: PRODUCT USED FOR UNKNOWN INDICATION
     Route: 065
  10. NAPROXEN. [Concomitant]
     Active Substance: NAPROXEN
     Indication: PRODUCT USED FOR UNKNOWN INDICATION
     Dosage: PRN
     Route: 065

REACTIONS (7)
  - Fall [Unknown]
  - Stomatitis [Unknown]
  - Constipation [Unknown]
  - Ankle fracture [Unknown]
  - Abdominal pain upper [Unknown]
  - Polyp [Unknown]
  - Haemorrhoids [Unknown]

NARRATIVE: CASE EVENT DATE: 201412
